FAERS Safety Report 13639853 (Version 1)
Quarter: 2017Q2

REPORT INFORMATION
  Report Type: Spontaneous
  Country: US (occurrence: US)
  Receive Date: 20170609
  Receipt Date: 20170609
  Transmission Date: 20170830
  Serious: No
  Sender: FDA-Public Use
  Company Number: US-ROCHE-221534

PATIENT
  Age: 58 Year
  Sex: Male
  Weight: 80.7 kg

DRUGS (8)
  1. FLEXERIL [Concomitant]
     Active Substance: CYCLOBENZAPRINE HYDROCHLORIDE
     Indication: ARTHRITIS
     Route: 048
  2. KLONOPIN [Suspect]
     Active Substance: CLONAZEPAM
     Route: 048
  3. KLONOPIN [Suspect]
     Active Substance: CLONAZEPAM
     Indication: INSOMNIA
     Route: 048
  4. KLONOPIN [Suspect]
     Active Substance: CLONAZEPAM
     Indication: TINNITUS
     Route: 048
  5. KLONOPIN [Suspect]
     Active Substance: CLONAZEPAM
     Dosage: TAKEN AT NIGHT
     Route: 048
     Dates: start: 199909, end: 199912
  6. KLONOPIN [Suspect]
     Active Substance: CLONAZEPAM
     Dosage: TAKEN AT NIGHT
     Route: 048
  7. NAPROSYNE [Concomitant]
     Active Substance: NAPROXEN
     Indication: ARTHRITIS
     Route: 048
  8. DARVOCET [Concomitant]
     Active Substance: ACETAMINOPHEN\PROPOXYPHENE HYDROCHLORIDE

REACTIONS (3)
  - Tinnitus [Not Recovered/Not Resolved]
  - Insomnia [Not Recovered/Not Resolved]
  - Drug ineffective [Unknown]

NARRATIVE: CASE EVENT DATE: 19990925
